FAERS Safety Report 10881543 (Version 2)
Quarter: 2015Q2

REPORT INFORMATION
  Report Type: Spontaneous
  Country: FR (occurrence: FR)
  Receive Date: 20150303
  Receipt Date: 20150416
  Transmission Date: 20150821
  Serious: Yes (Hospitalization, Other)
  Sender: FDA-Public Use
  Company Number: FR-ASTRAZENECA-2015SE17732

PATIENT
  Age: 14549 Day
  Sex: Female
  Weight: 67 kg

DRUGS (9)
  1. XEROQUEL [Suspect]
     Active Substance: QUETIAPINE FUMARATE
     Indication: BIPOLAR DISORDER
     Route: 048
     Dates: start: 20140701
  2. XEROQUEL [Suspect]
     Active Substance: QUETIAPINE FUMARATE
     Indication: BIPOLAR DISORDER
     Route: 048
  3. XEROQUEL [Suspect]
     Active Substance: QUETIAPINE FUMARATE
     Indication: BIPOLAR DISORDER
     Route: 048
  4. ACUPAN [Concomitant]
     Active Substance: NEFOPAM HYDROCHLORIDE
     Indication: ABDOMINAL PAIN
     Dosage: 20 VIALS PER DAY
     Dates: start: 20141101, end: 20141231
  5. XEROQUEL [Suspect]
     Active Substance: QUETIAPINE FUMARATE
     Indication: BIPOLAR DISORDER
     Dosage: 1600 MG TO 2400 MG PER DAY INSTEAD OF 800 MG PER DAY
     Route: 048
     Dates: start: 20140701
  6. BROMAZEPAM [Concomitant]
     Active Substance: BROMAZEPAM
  7. DIAZEPAM. [Concomitant]
     Active Substance: DIAZEPAM
     Indication: DEPRESSION
     Dates: start: 20130601
  8. ATARAX [Concomitant]
     Active Substance: HYDROXYZINE\HYDROXYZINE HYDROCHLORIDE
     Indication: DEPRESSION
     Dates: start: 20130701, end: 20150114
  9. VENLAFAXINE [Concomitant]
     Active Substance: VENLAFAXINE HYDROCHLORIDE
     Indication: DEPRESSION
     Dates: start: 20130601

REACTIONS (5)
  - Drug dependence [Recovering/Resolving]
  - Weight increased [Recovered/Resolved]
  - Anxiety [Unknown]
  - Intentional product misuse [Recovering/Resolving]
  - Ileus [Not Recovered/Not Resolved]

NARRATIVE: CASE EVENT DATE: 20140701
